FAERS Safety Report 9868455 (Version 1)
Quarter: 2014Q1

REPORT INFORMATION
  Report Type: Spontaneous
  Country: CA (occurrence: CA)
  Receive Date: 20140204
  Receipt Date: 20140204
  Transmission Date: 20141002
  Serious: Yes (Hospitalization)
  Sender: FDA-Public Use
  Company Number: CA-B.I. PHARMACEUTICALS,INC./RIDGEFIELD-2014-BI-04799CN

PATIENT
  Age: 81 Year
  Sex: Female

DRUGS (7)
  1. PRADAXA [Suspect]
     Indication: PRODUCT USED FOR UNKNOWN INDICATION
     Dosage: 300 MG
     Route: 048
  2. ATORVASTATIN CALCIUM [Concomitant]
  3. BISOPROLOL [Concomitant]
  4. CANDESARTAN CILEXETIL [Concomitant]
  5. FUROSEMIDE [Concomitant]
  6. METFORMIN [Concomitant]
  7. NIFEDIPINE [Concomitant]

REACTIONS (4)
  - Haemoglobin decreased [Unknown]
  - International normalised ratio increased [Unknown]
  - Rectal haemorrhage [Unknown]
  - Faeces discoloured [Unknown]
